FAERS Safety Report 13842427 (Version 1)
Quarter: 2017Q3

REPORT INFORMATION
  Report Type: Spontaneous
  Country: CA (occurrence: CA)
  Receive Date: 20170808
  Receipt Date: 20170808
  Transmission Date: 20171127
  Serious: Yes (Other)
  Sender: FDA-Public Use
  Company Number: CA-BAYER-2017-145808

PATIENT
  Sex: Male

DRUGS (1)
  1. ASPIRIN. [Suspect]
     Active Substance: ASPIRIN
     Indication: CHEST PAIN
     Dosage: 6 DF, UNK
     Dates: start: 201707

REACTIONS (2)
  - Pulmonary embolism [None]
  - Incorrect dose administered [None]

NARRATIVE: CASE EVENT DATE: 201707
